FAERS Safety Report 7214962-0 (Version None)
Quarter: 2011Q1

REPORT INFORMATION
  Report Type: 
  Country: None (occurrence: None)
  Receive Date: 20110107
  Receipt Date: 20100609
  Transmission Date: 20110831
  Serious: No
  Sender: FDA-Public Use
  Company Number: A0864043A

PATIENT
  Age: 59 Year
  Sex: Female

DRUGS (3)
  1. ZYRTEC [Concomitant]
  2. LOVAZA [Suspect]
     Dosage: 1G FOUR TIMES PER DAY
     Route: 048
     Dates: start: 20070701
  3. MULTIVITAMIN [Concomitant]

REACTIONS (6)
  - VOMITING [None]
  - THERAPEUTIC RESPONSE UNEXPECTED [None]
  - NAUSEA [None]
  - DECREASED APPETITE [None]
  - WEIGHT DECREASED [None]
  - DIARRHOEA [None]
